FAERS Safety Report 4463493-X (Version None)
Quarter: 2004Q3

REPORT INFORMATION
  Report Type: 
  Country: None (occurrence: None)
  Receive Date: 20040930
  Receipt Date: 20040827
  Transmission Date: 20050211
  Serious: Yes (Hospitalization)
  Sender: FDA-Public Use
  Company Number: US-MERCK-0408USA02227

PATIENT
  Age: 54 Year
  Sex: Female

DRUGS (2)
  1. SINGULAIR [Suspect]
     Indication: ASTHMA
     Route: 048
     Dates: end: 20040101
  2. PREDNISONE [Concomitant]
     Route: 065

REACTIONS (15)
  - ALLERGIC GRANULOMATOUS ANGIITIS [None]
  - AREFLEXIA [None]
  - COUGH [None]
  - CUSHINGOID [None]
  - DIFFICULTY IN WALKING [None]
  - DYSKINESIA [None]
  - HYPOAESTHESIA [None]
  - INTENTION TREMOR [None]
  - MUSCLE ATROPHY [None]
  - PAIN IN EXTREMITY [None]
  - PERONEAL NERVE PALSY [None]
  - RASH [None]
  - RASH ERYTHEMATOUS [None]
  - RASH MACULAR [None]
  - WHEEZING [None]
